FAERS Safety Report 9772172 (Version 1)
Quarter: 2013Q4

REPORT INFORMATION
  Report Type: Spontaneous
  Country: US (occurrence: None)
  Receive Date: 20131011
  Receipt Date: 20131011
  Transmission Date: 20140711
  Serious: Yes (Hospitalization)
  Sender: FDA-Public Use
  Company Number: 2010S1000105

PATIENT
  Age: 68 Year
  Sex: Female
  Weight: 64.41 kg

DRUGS (6)
  1. FLEET PHOSPHO-SODA [Suspect]
     Indication: COLONOSCOPY
     Route: 048
  2. COUMADIN (WARFARIN SODIUM) [Concomitant]
  3. TOPROL XL (METOPROLOL SUCCINATE) (100 MILLIGRAM) (METOPROLOL SUCCINATE) [Concomitant]
  4. FOSAMAX (ALENDRONATE SODIUM) [Concomitant]
  5. VYTORIN (SIMVASTATIN, EZETIMIBE) [Concomitant]
  6. DIOVAN (VALSARTAN) [Concomitant]

REACTIONS (7)
  - Renal failure acute [None]
  - Renal failure chronic [None]
  - Acute phosphate nephropathy [None]
  - Headache [None]
  - Tremor [None]
  - Dizziness [None]
  - Hypertensive nephropathy [None]
